FAERS Safety Report 7893626-4 (Version None)
Quarter: 2011Q4

REPORT INFORMATION
  Report Type: 
  Country: None (occurrence: None)
  Receive Date: 20111104
  Receipt Date: 20111101
  Transmission Date: 20120403
  Serious: Yes (Death)
  Sender: FDA-Public Use
  Company Number: JP-GLAXOSMITHKLINE-B0738236A

PATIENT
  Sex: Female
  Weight: 41 kg

DRUGS (4)
  1. PREDNISOLONE [Concomitant]
     Indication: IDIOPATHIC THROMBOCYTOPENIC PURPURA
     Dosage: 10MG PER DAY
     Route: 048
  2. PREDNISOLONE [Concomitant]
     Dosage: 20MG PER DAY
     Route: 048
     Dates: start: 20110406, end: 20110619
  3. PREDNISOLONE [Concomitant]
     Dosage: 20MG PER DAY
     Route: 065
     Dates: start: 20110620, end: 20110706
  4. PROMACTA [Suspect]
     Indication: IDIOPATHIC THROMBOCYTOPENIC PURPURA
     Route: 048
     Dates: start: 20101220, end: 20110706

REACTIONS (2)
  - MULTI-ORGAN FAILURE [None]
  - WHITE BLOOD CELL MORPHOLOGY ABNORMAL [None]
